FAERS Safety Report 8484069-3 (Version None)
Quarter: 2012Q3

REPORT INFORMATION
  Report Type: 
  Country: None (occurrence: None)
  Receive Date: 20120703
  Receipt Date: 20120625
  Transmission Date: 20120928
  Serious: Yes (Hospitalization)
  Sender: FDA-Public Use
  Company Number: US-SANOFI-AVENTIS-2012SA031942

PATIENT
  Age: 58 Year
  Sex: Male

DRUGS (18)
  1. BLINDED THERAPY [Concomitant]
     Indication: TYPE 2 DIABETES MELLITUS
     Dates: start: 20100821
  2. NITROGLYCERIN [Concomitant]
  3. ASPIRIN [Concomitant]
  4. EZETIMIBE [Concomitant]
  5. LASIX [Suspect]
     Route: 042
     Dates: start: 20120301, end: 20120301
  6. METFORMIN HCL [Concomitant]
     Indication: TYPE 2 DIABETES MELLITUS
  7. LANTUS [Concomitant]
     Indication: TYPE 2 DIABETES MELLITUS
  8. LASIX [Suspect]
     Route: 042
     Dates: start: 20120414
  9. ACTOS [Concomitant]
     Indication: TYPE 2 DIABETES MELLITUS
  10. NOVOLOG [Concomitant]
  11. DIURETICS [Concomitant]
  12. PLATELET AGGREGATION INHIBITORS [Concomitant]
  13. LASIX [Suspect]
     Route: 042
     Dates: start: 20120401, end: 20120401
  14. BETA BLOCKING AGENTS [Concomitant]
  15. ALDOSTERONE [Concomitant]
  16. CALCIUM CHANNEL BLOCKERS [Concomitant]
  17. ANGIOTENSIN II [Concomitant]
  18. CHOLESTEROL- AND TRIGLYCERIDE REDUCERS [Concomitant]

REACTIONS (3)
  - PROSTATE CANCER METASTATIC [None]
  - RENAL IMPAIRMENT [None]
  - NON-CARDIAC CHEST PAIN [None]
